FAERS Safety Report 4302704-8 (Version None)
Quarter: 2004Q1

REPORT INFORMATION
  Report Type: 
  Country: None (occurrence: None)
  Receive Date: 20040126
  Receipt Date: 20031014
  Transmission Date: 20041129
  Serious: No
  Sender: FDA-Public Use
  Company Number: USA031049857

PATIENT
  Sex: Male

DRUGS (1)
  1. STRATTERA [Suspect]
     Dosage: 18 MG/IN THE MORNING
     Dates: start: 20030801

REACTIONS (5)
  - DRUG INEFFECTIVE [None]
  - HEADACHE [None]
  - MOOD SWINGS [None]
  - PALLOR [None]
  - VOMITING [None]
